FAERS Safety Report 21694244 (Version 1)
Quarter: 2022Q4

REPORT INFORMATION
  Report Type: Spontaneous
  Country: US (occurrence: US)
  Receive Date: 20221207
  Receipt Date: 20221207
  Transmission Date: 20230113
  Serious: No
  Sender: FDA-Public Use
  Company Number: US-PFIZER INC-202101090756

PATIENT
  Age: 63 Year
  Sex: Female

DRUGS (5)
  1. IBRANCE [Suspect]
     Active Substance: PALBOCICLIB
     Indication: Breast cancer female
     Dosage: 1 TABLET BY MOUTH ONCE A DAY FOR 21 DAYS THEN 7 DAYS OFF
     Route: 048
     Dates: start: 20210522
  2. ASPIRIN [Concomitant]
     Active Substance: ASPIRIN
  3. BENICAR HCT [Concomitant]
     Active Substance: HYDROCHLOROTHIAZIDE\OLMESARTAN MEDOXOMIL
  4. ESCITALOPRAM [Concomitant]
     Active Substance: ESCITALOPRAM OXALATE
  5. TRULICITY [Concomitant]
     Active Substance: DULAGLUTIDE
     Dosage: INJECTION 0.75/0.5

REACTIONS (1)
  - Fatigue [Not Recovered/Not Resolved]
